FAERS Safety Report 8973639 (Version 1)
Quarter: 2012Q4

REPORT INFORMATION
  Report Type: 
  Country: US (occurrence: US)
  Receive Date: 20121218
  Receipt Date: 20121218
  Transmission Date: 20130627
  Serious: Yes (Hospitalization, Other)
  Sender: FDA-Public Use
  Company Number: US-BRISTOL-MYERS SQUIBB COMPANY-16902496

PATIENT
  Sex: Male

DRUGS (3)
  1. ABILIFY [Suspect]
  2. LATUDA [Suspect]
     Route: 048
  3. SEROQUEL [Suspect]

REACTIONS (1)
  - Rhabdomyolysis [Recovering/Resolving]
